FAERS Safety Report 4900321-X (Version None)
Quarter: 2006Q1

REPORT INFORMATION
  Report Type: 
  Country: None (occurrence: None)
  Receive Date: 20060203
  Receipt Date: 20060131
  Transmission Date: 20060701
  Serious: Yes (Hospitalization, Other)
  Sender: FDA-Public Use
  Company Number: US-GLAXOSMITHKLINE-A0591941A

PATIENT
  Sex: Female

DRUGS (9)
  1. LAMICTAL [Suspect]
     Indication: BIPOLAR DISORDER
     Dosage: 50MG UNKNOWN
     Route: 048
     Dates: start: 20050101, end: 20050101
  2. BUPROPION [Concomitant]
  3. RITALIN [Concomitant]
  4. KLONOPIN [Concomitant]
  5. COUMADIN [Concomitant]
  6. LIPITOR [Concomitant]
  7. LIPRAM [Concomitant]
  8. LASIX [Concomitant]
  9. PRILOSEC [Concomitant]

REACTIONS (3)
  - ORAL MUCOSAL BLISTERING [None]
  - RASH [None]
  - SUICIDE ATTEMPT [None]
